FAERS Safety Report 8246179-5 (Version None)
Quarter: 2012Q1

REPORT INFORMATION
  Report Type: 
  Country: None (occurrence: None)
  Receive Date: 20120330
  Receipt Date: 20120327
  Transmission Date: 20120608
  Serious: Yes (Death)
  Sender: FDA-Public Use
  Company Number: PHEH2012US002732

PATIENT
  Sex: Male
  Weight: 102 kg

DRUGS (4)
  1. ZOMETA [Suspect]
     Dosage: 4 MG, QMO
     Route: 042
     Dates: start: 20111130, end: 20111130
  2. VELCADE [Concomitant]
     Indication: MULTIPLE MYELOMA
     Dosage: 2.1 MG, UNK
     Route: 042
     Dates: start: 20111007, end: 20111030
  3. ZOMETA [Suspect]
     Dosage: 4 MG, QMO
     Route: 042
     Dates: start: 20110919
  4. ZOMETA [Suspect]
     Dosage: 4 MG, QMO
     Route: 042
     Dates: start: 20111022

REACTIONS (1)
  - DEATH [None]
